FAERS Safety Report 22324314 (Version 1)
Quarter: 2023Q2

REPORT INFORMATION
  Report Type: Spontaneous
  Country: US (occurrence: None)
  Receive Date: 20230515
  Receipt Date: 20230515
  Transmission Date: 20230722
  Serious: No
  Sender: FDA-Public Use
  Company Number: None

PATIENT
  Age: 79 Year
  Sex: Male
  Weight: 84.37 kg

DRUGS (8)
  1. ABIRATERONE [Suspect]
     Active Substance: ABIRATERONE
     Indication: Prostate cancer
     Dosage: FREQUENCY : DAILY;?
     Route: 048
  2. BISOPROLOL [Concomitant]
  3. HYDRALAZINE [Concomitant]
  4. LOSARTAN [Concomitant]
     Active Substance: LOSARTAN
  5. PREDNISONE [Concomitant]
  6. ROSUVASTATIN [Concomitant]
  7. TAMSULOSIN [Concomitant]
  8. TYLENOL [Concomitant]
     Active Substance: ACETAMINOPHEN

REACTIONS (1)
  - Disease progression [None]
